FAERS Safety Report 7350326-7 (Version None)
Quarter: 2011Q1

REPORT INFORMATION
  Report Type: 
  Country: None (occurrence: None)
  Receive Date: 20110314
  Receipt Date: 20110308
  Transmission Date: 20110831
  Serious: No
  Sender: FDA-Public Use
  Company Number: US-ROXANE LABORATORIES, INC.-2010-RO-01207RO

PATIENT
  Age: 47 Year
  Sex: Female

DRUGS (3)
  1. OXCARBAZEPINE [Suspect]
     Dosage: 300 MG
     Route: 048
     Dates: start: 20100601, end: 20100710
  2. OXCARBAZEPINE [Suspect]
     Indication: AFFECTIVE DISORDER
     Dosage: 900 MG
     Route: 048
     Dates: start: 20100710
  3. THYROID TAB [Concomitant]
     Indication: HYPOTHYROIDISM

REACTIONS (1)
  - TOOTH DISCOLOURATION [None]
